FAERS Safety Report 5276464-0 (Version None)
Quarter: 2007Q1

REPORT INFORMATION
  Report Type: 
  Country: None (occurrence: None)
  Receive Date: 20061213
  Receipt Date: 20040225
  Transmission Date: 20070707
  Serious: Yes (Hospitalization)
  Sender: FDA-Public Use
  Company Number: 2003UW15999

PATIENT
  Age: 24 Year
  Sex: Male
  Weight: 95.2554 kg

DRUGS (6)
  1. SEROQUEL [Suspect]
     Indication: SCHIZOPHRENIA
     Dosage: 300 MG PO
     Route: 048
  2. SEROQUEL [Suspect]
     Indication: SCHIZOPHRENIA
     Dosage: 800 MG PO
     Route: 048
     Dates: start: 20031101
  3. RISPERDAL [Suspect]
  4. GEMFIBROZIL [Concomitant]
  5. METFORMIN HCL [Concomitant]
  6. INSULIN [Concomitant]

REACTIONS (2)
  - DYSPNOEA [None]
  - SWOLLEN TONGUE [None]
